FAERS Safety Report 16173777 (Version 1)
Quarter: 2019Q2

REPORT INFORMATION
  Report Type: Other
  Country: ES (occurrence: ES)
  Receive Date: 20190409
  Receipt Date: 20190409
  Transmission Date: 20190711
  Serious: Yes (Other)
  Sender: FDA-Public Use
  Company Number: ES-APOTEX-2019AP011032

PATIENT
  Age: 78 Year
  Sex: Female

DRUGS (6)
  1. DUROGESIC [Interacting]
     Active Substance: FENTANYL
     Indication: BACK PAIN
     Dosage: 72 H, 1 CADA 72 HORAS. EL MAP INICI? CON 12 MICROGRAMOS/H EN FEBRERO DE 2017, EN MARZO DE 2017 LE PA
     Route: 062
     Dates: start: 201712
  2. EXFORGE HCT [Interacting]
     Active Substance: AMLODIPINE BESYLATE\HYDROCHLOROTHIAZIDE\VALSARTAN
     Indication: HYPERTENSION
     Dosage: 1 DF, QD, 1 CADA 24 HORAS
     Route: 048
     Dates: start: 201011
  3. FLUOXETINE [Suspect]
     Active Substance: FLUOXETINE HYDROCHLORIDE
     Indication: ADJUSTMENT DISORDER WITH DEPRESSED MOOD
     Dosage: 20 MG, QD, 1-0-0-0
     Route: 048
     Dates: start: 201201, end: 2018
  4. TOVIAZ [Interacting]
     Active Substance: FESOTERODINE FUMARATE
     Indication: HYPERTONIC BLADDER
     Dosage: 8 MG, QD, 1 CADA 24 HORAS
     Route: 048
     Dates: start: 201301, end: 2018
  5. LORAZEPAM. [Interacting]
     Active Substance: LORAZEPAM
     Indication: ADJUSTMENT DISORDER WITH DEPRESSED MOOD
     Dosage: 1 MG, QD, 0-0-0-1
     Route: 048
     Dates: start: 201201, end: 2018
  6. EFFERALGAN [Concomitant]
     Active Substance: ACETAMINOPHEN
     Indication: PRODUCT USED FOR UNKNOWN INDICATION
     Dosage: 1 DF, TID, 1-1-1-0. HASTA 3 AL D?A, PARA EL DOLOR. 1 CADA 8 HORAS
     Route: 048

REACTIONS (1)
  - Parotitis [Recovered/Resolved]

NARRATIVE: CASE EVENT DATE: 201808
